FAERS Safety Report 20932423 (Version 2)
Quarter: 2022Q2

REPORT INFORMATION
  Report Type: Spontaneous
  Country: US (occurrence: None)
  Receive Date: 20220608
  Receipt Date: 20220609
  Transmission Date: 20220721
  Serious: No
  Sender: FDA-Public Use
  Company Number: US-ROCHE-2902061

PATIENT
  Age: 56 Year
  Sex: Female
  Weight: 72.640 kg

DRUGS (8)
  1. ACTEMRA [Suspect]
     Active Substance: TOCILIZUMAB
     Indication: Rheumatoid arthritis
     Dosage: ONGOING: NO
     Route: 058
     Dates: start: 20210712, end: 20210812
  2. ACTEMRA [Suspect]
     Active Substance: TOCILIZUMAB
     Indication: Rheumatoid arthritis
     Route: 058
     Dates: start: 202108
  3. ACTEMRA [Suspect]
     Active Substance: TOCILIZUMAB
  4. ACTEMRA [Suspect]
     Active Substance: TOCILIZUMAB
  5. LOTRISONE [Concomitant]
     Active Substance: BETAMETHASONE DIPROPIONATE\CLOTRIMAZOLE
     Indication: Fungal skin infection
     Dosage: 1-.005% APPLY TO AFFECTED AREA FOR 1 MONTH; AT BEDTIME
     Route: 061
     Dates: start: 20210815, end: 20210823
  6. LOTRISONE [Concomitant]
     Active Substance: BETAMETHASONE DIPROPIONATE\CLOTRIMAZOLE
     Dosage: 1-.005% APPLY TO AFFECTED AREA FOR 1 MONTH; AT BEDTIME
     Route: 061
     Dates: start: 20210827
  7. SPORANOX [Concomitant]
     Active Substance: ITRACONAZOLE
     Indication: Rash
     Dosage: 2 CAPSULES BY MOUTH FOR 14 DAYS
     Route: 048
     Dates: start: 20210815, end: 20210823
  8. SPORANOX [Concomitant]
     Active Substance: ITRACONAZOLE
     Dosage: 2 CAPSULES
     Route: 048
     Dates: start: 20210827

REACTIONS (1)
  - Rash [Not Recovered/Not Resolved]

NARRATIVE: CASE EVENT DATE: 20210815
